FAERS Safety Report 4916260-4 (Version None)
Quarter: 2006Q1

REPORT INFORMATION
  Report Type: 
  Country: None (occurrence: None)
  Receive Date: 20060217
  Receipt Date: 20051001
  Transmission Date: 20060701
  Serious: Yes (Hospitalization)
  Sender: FDA-Public Use
  Company Number: PR-MERCK-0510USA00898

PATIENT
  Age: 75 Year
  Sex: Male
  Weight: 105 kg

DRUGS (1)
  1. VIOXX [Suspect]
     Indication: MYALGIA
     Route: 048
     Dates: start: 20040608, end: 20040716

REACTIONS (5)
  - CHEST PAIN [None]
  - HEADACHE [None]
  - LYMPHADENOPATHY [None]
  - RENAL DISORDER [None]
  - URINARY RETENTION [None]
